FAERS Safety Report 4284885-8 (Version None)
Quarter: 2004Q1

REPORT INFORMATION
  Report Type: 
  Country: None (occurrence: None)
  Receive Date: 20040202
  Receipt Date: 20030304
  Transmission Date: 20041129
  Serious: Yes (Life-Threatening)
  Sender: FDA-Public Use
  Company Number: DSA_70058_2003

PATIENT
  Age: 42 Year
  Sex: Female
  Weight: 113.3993 kg

DRUGS (1)
  1. BRETHINE [Suspect]
     Indication: HYPOXIA
     Dosage: 0.25 MG ONCE IV
     Route: 042
     Dates: start: 20030207

REACTIONS (3)
  - CARDIAC ARREST [None]
  - ELECTROMECHANICAL DISSOCIATION [None]
  - MEDICATION ERROR [None]
